FAERS Safety Report 9087790 (Version 11)
Quarter: 2013Q4

REPORT INFORMATION
  Report Type: Spontaneous
  Country: US (occurrence: US)
  Receive Date: 20130201
  Receipt Date: 20131108
  Transmission Date: 20140711
  Serious: Yes (Death, Hospitalization)
  Sender: FDA-Public Use
  Company Number: US-B.I. PHARMACEUTICALS,INC./RIDGEFIELD-2013-BI-02260BP

PATIENT
  Age: 76 Year
  Sex: Male
  Weight: 83.91 kg

DRUGS (18)
  1. PRADAXA [Suspect]
     Indication: ANTICOAGULANT THERAPY
     Dosage: 300 MG
     Route: 048
     Dates: start: 20110425, end: 20120921
  2. PRADAXA [Suspect]
     Indication: ATRIAL FIBRILLATION
  3. BABY ASPIRIN [Concomitant]
  4. TUMS [Concomitant]
     Route: 048
  5. CENTRUM SILVER [Concomitant]
  6. LISINOPRIL [Concomitant]
     Dosage: 5 MG
  7. LIPITOR [Concomitant]
     Dosage: 20 MG
     Route: 048
  8. TOPROL XL [Concomitant]
     Dosage: 100 MG
     Route: 048
  9. CARDIZEM [Concomitant]
     Dosage: 120 MG
     Route: 048
  10. ALENDRONATE [Concomitant]
  11. VITAMIN D [Concomitant]
  12. CALCIUM [Concomitant]
  13. SYNTHROID [Concomitant]
  14. PREDNISONE [Concomitant]
     Route: 048
  15. CELEXA [Concomitant]
     Dosage: 20 MG
     Route: 048
  16. DIOVAN [Concomitant]
     Dosage: 160 MG
     Route: 048
  17. MULTIVITAMINS [Concomitant]
     Route: 048
  18. VITAMIN C [Concomitant]
     Dosage: 500 MG
     Route: 048

REACTIONS (8)
  - Shock haemorrhagic [Fatal]
  - Haemorrhage [Fatal]
  - Intra-abdominal haemorrhage [Fatal]
  - Vascular pseudoaneurysm [Fatal]
  - Gastrointestinal haemorrhage [Unknown]
  - Myocardial infarction [Unknown]
  - Abdominal pain [Unknown]
  - Respiratory failure [Unknown]
